FAERS Safety Report 15189226 (Version 1)
Quarter: 2018Q3

REPORT INFORMATION
  Report Type: Spontaneous
  Country: US (occurrence: US)
  Receive Date: 20180625
  Receipt Date: 20180625
  Transmission Date: 20181010
  Serious: No
  Sender: FDA-Public Use
  Company Number: None

PATIENT
  Age: 64 Year
  Sex: Male
  Weight: 93 kg

DRUGS (2)
  1. SILDENAFIL. [Suspect]
     Active Substance: SILDENAFIL
     Indication: PAIN
     Route: 048
     Dates: start: 20040706, end: 20180609
  2. SILDENAFIL. [Suspect]
     Active Substance: SILDENAFIL
     Indication: PRIAPISM
     Route: 048
     Dates: start: 20040706, end: 20180609

REACTIONS (2)
  - Priapism [None]
  - Painful erection [None]

NARRATIVE: CASE EVENT DATE: 20180609
